FAERS Safety Report 15599283 (Version 4)
Quarter: 2018Q4

REPORT INFORMATION
  Report Type: Spontaneous
  Country: DE (occurrence: DE)
  Receive Date: 20181108
  Receipt Date: 20181231
  Transmission Date: 20190205
  Serious: Yes (Other)
  Sender: FDA-Public Use
  Company Number: DE-TEVA-2018-DE-973415

PATIENT
  Age: 80 Year
  Sex: Female

DRUGS (13)
  1. METHOTREXATE SODIUM. [Suspect]
     Active Substance: METHOTREXATE SODIUM
     Dosage: WEEKLY
     Route: 058
     Dates: start: 201507, end: 20160108
  2. METHOTREXATE SODIUM. [Suspect]
     Active Substance: METHOTREXATE SODIUM
     Dosage: 15 MG, 2X/WEEK
     Route: 058
     Dates: start: 201504, end: 20150617
  3. METHOTREXATE SODIUM. [Suspect]
     Active Substance: METHOTREXATE SODIUM
     Indication: RHEUMATOID ARTHRITIS
     Dosage: 15 MG, UNK
     Route: 058
     Dates: start: 20121204, end: 20150128
  4. ORENCIA [Concomitant]
     Active Substance: ABATACEPT
     Dosage: 125 MG, WEEKLY
     Route: 065
  5. ROACTEMRA [Suspect]
     Active Substance: TOCILIZUMAB
     Indication: RHEUMATOID ARTHRITIS
     Route: 058
     Dates: start: 20150313, end: 20150428
  6. ROACTEMRA [Suspect]
     Active Substance: TOCILIZUMAB
     Route: 058
     Dates: start: 201504, end: 20150617
  7. ENBREL [Suspect]
     Active Substance: ETANERCEPT
     Indication: PRODUCT USED FOR UNKNOWN INDICATION
     Route: 065
     Dates: start: 200807, end: 201205
  8. SECUKINUMAB. [Concomitant]
     Active Substance: SECUKINUMAB
     Dosage: 75 MG, MONTHLY
     Route: 058
     Dates: start: 20121204, end: 20150128
  9. ALENDRONATE SODIUM. [Suspect]
     Active Substance: ALENDRONATE SODIUM
     Indication: PRODUCT USED FOR UNKNOWN INDICATION
     Dosage: UNK
     Route: 048
  10. PREDNISOLONE. [Concomitant]
     Active Substance: PREDNISOLONE
     Dosage: 2.5 MILLIGRAM DAILY; 2.5 MG, 2X/DAY
     Route: 065
  11. METHOTREXATE SODIUM. [Suspect]
     Active Substance: METHOTREXATE SODIUM
     Dosage: WEEKLY
     Route: 058
     Dates: start: 20150313, end: 20150428
  12. ARCOXIA [Suspect]
     Active Substance: ETORICOXIB
     Indication: PRODUCT USED FOR UNKNOWN INDICATION
     Dosage: UNK
     Route: 048
  13. ROACTEMRA [Suspect]
     Active Substance: TOCILIZUMAB
     Dosage: MOST RECENT DOSE 08/JAN/2016
     Route: 058
     Dates: start: 201507

REACTIONS (10)
  - Drug intolerance [Unknown]
  - Infected fistula [Unknown]
  - Rheumatoid nodule [Unknown]
  - Spinal fracture [Unknown]
  - Spinal pain [Unknown]
  - Drug ineffective [Unknown]
  - Osteoarthritis [Unknown]
  - Respiratory tract infection [Unknown]
  - Spondylolisthesis [Unknown]
  - Purulent discharge [Unknown]

NARRATIVE: CASE EVENT DATE: 20170322
